FAERS Safety Report 4718910-4 (Version None)
Quarter: 2005Q3

REPORT INFORMATION
  Report Type: 
  Country: None (occurrence: None)
  Receive Date: 20050719
  Receipt Date: 20050708
  Transmission Date: 20060218
  Serious: Yes (Death)
  Sender: FDA-Public Use
  Company Number: 2005098809

PATIENT
  Age: 89 Year
  Sex: Male

DRUGS (3)
  1. ALDACTONE [Suspect]
     Indication: ILL-DEFINED DISORDER
     Dosage: ORAL
     Route: 048
     Dates: start: 20000615
  2. ALDALIX (SPIRONOLACTONE, FUROSEMIDE) [Suspect]
     Indication: ILL-DEFINED DISORDER
     Dosage: ORAL
     Route: 048
     Dates: start: 20000615
  3. BUMETANIDE [Suspect]
     Indication: ILL-DEFINED DISORDER
     Dosage: 1.5 TABLETS DAILY ORAL
     Route: 048
     Dates: start: 20000615, end: 20030401

REACTIONS (9)
  - CARDIAC DISORDER [None]
  - CONFUSIONAL STATE [None]
  - DEHYDRATION [None]
  - DIABETIC COMPLICATION [None]
  - HEPATIC FAILURE [None]
  - IATROGENIC INJURY [None]
  - MULTI-ORGAN FAILURE [None]
  - RENAL FAILURE [None]
  - SOMNOLENCE [None]
